FAERS Safety Report 15115230 (Version 2)
Quarter: 2018Q3

REPORT INFORMATION
  Report Type: Spontaneous
  Country: US (occurrence: US)
  Receive Date: 20180706
  Receipt Date: 20180924
  Transmission Date: 20181010
  Serious: Yes (Death)
  Sender: FDA-Public Use
  Company Number: US-ALLERGAN-1823727US

PATIENT
  Age: 52 Year
  Sex: Male

DRUGS (1)
  1. VRAYLAR [Suspect]
     Active Substance: CARIPRAZINE
     Indication: SCHIZOAFFECTIVE DISORDER
     Dosage: 1.5 MG (TAKING ONCE IN A DAY, FOUR DAYS A WEEK)
     Route: 048
     Dates: start: 201802, end: 201803

REACTIONS (3)
  - Completed suicide [Fatal]
  - Delusion [Unknown]
  - Off label use [Unknown]

NARRATIVE: CASE EVENT DATE: 20180317
